FAERS Safety Report 20009375 (Version 2)
Quarter: 2021Q4

REPORT INFORMATION
  Report Type: Spontaneous
  Country: FR (occurrence: FR)
  Receive Date: 20211029
  Receipt Date: 20211223
  Transmission Date: 20220304
  Serious: Yes (Other)
  Sender: FDA-Public Use
  Company Number: FR-CHIESI-2021CHF05243

PATIENT
  Age: 3 Hour
  Sex: Male

DRUGS (2)
  1. CUROSURF [Suspect]
     Active Substance: PORACTANT ALFA
     Indication: Product used for unknown indication
     Dosage: UNK
     Route: 007
     Dates: start: 20210824, end: 20210824
  2. PROPOFOL LIPURO [Concomitant]
     Active Substance: PROPOFOL
     Indication: Sedation
     Dosage: 0.5 MILLIGRAM/KILOGRAM
     Dates: start: 20210824, end: 20210824

REACTIONS (2)
  - Neonatal hypoxia [Recovered/Resolved]
  - Infantile apnoea [Recovered/Resolved]

NARRATIVE: CASE EVENT DATE: 20210824
